FAERS Safety Report 21351259 (Version 1)
Quarter: 2022Q3

REPORT INFORMATION
  Report Type: Spontaneous
  Country: US (occurrence: US)
  Receive Date: 20220919
  Receipt Date: 20220919
  Transmission Date: 20221027
  Serious: No
  Sender: FDA-Public Use
  Company Number: US-BRISTOL-MYERS SQUIBB COMPANY-2022-108460

PATIENT
  Sex: Female

DRUGS (1)
  1. KENALOG [Suspect]
     Active Substance: TRIAMCINOLONE ACETONIDE
     Indication: Product used for unknown indication
     Dosage: DOSE : UNAV;     FREQ : UNAV?STRENGTH AND PRESENTATION OF THE AE : 400 MG / 10 ML
     Route: 058

REACTIONS (3)
  - Skin reaction [Unknown]
  - Pruritus [Unknown]
  - Intentional product use issue [Unknown]
